FAERS Safety Report 7749184-8 (Version None)
Quarter: 2011Q3

REPORT INFORMATION
  Report Type: 
  Country: None (occurrence: None)
  Receive Date: 20110914
  Receipt Date: 20110901
  Transmission Date: 20111222
  Serious: Yes (Other)
  Sender: FDA-Public Use
  Company Number: JP-UCBSA-039108

PATIENT
  Sex: Male

DRUGS (9)
  1. DEPAKENE [Concomitant]
     Route: 048
     Dates: start: 20110706
  2. MUCODYNE DS [Concomitant]
     Route: 048
     Dates: start: 20110701
  3. TANNALBIN [Concomitant]
     Route: 048
     Dates: start: 20110702
  4. LAMICTAL [Concomitant]
     Route: 048
     Dates: start: 20110723
  5. KEPPRA [Suspect]
     Indication: CONVULSION
     Route: 048
     Dates: start: 20110614, end: 20110810
  6. POLYFUL [Concomitant]
     Route: 048
     Dates: start: 20110716
  7. PROTECADIN [Concomitant]
     Route: 048
     Dates: start: 20110726
  8. LAC-B [Concomitant]
     Route: 048
     Dates: start: 20110607
  9. DAI-KENCHU-TO [Concomitant]
     Route: 048
     Dates: start: 20110727

REACTIONS (1)
  - PROTEINURIA [None]
